FAERS Safety Report 8248399-2 (Version None)
Quarter: 2012Q1

REPORT INFORMATION
  Report Type: 
  Country: None (occurrence: None)
  Receive Date: 20120330
  Receipt Date: 20120323
  Transmission Date: 20120608
  Serious: Yes (Other)
  Sender: FDA-Public Use
  Company Number: US-ASTRAZENECA-2012SE20227

PATIENT
  Sex: Female
  Weight: 59 kg

DRUGS (9)
  1. SIMVASTATIN [Concomitant]
     Indication: BLOOD CHOLESTEROL ABNORMAL
  2. XANAX [Concomitant]
     Dosage: 1 MG AS NEEDED, 2 TO 3 TIMES A DAY
  3. LISINOPRIL [Concomitant]
     Indication: HYPERTENSION
  4. SEROQUEL [Suspect]
     Indication: BIPOLAR DISORDER
     Route: 048
  5. LAMICTAL [Concomitant]
     Indication: BIPOLAR DISORDER
  6. ASPIRIN [Concomitant]
     Indication: ANTICOAGULANT THERAPY
  7. CLONAZEPAM [Concomitant]
     Indication: SLEEP DISORDER
  8. SEROQUEL [Suspect]
     Indication: BIPOLAR I DISORDER
     Route: 048
  9. VALTREX [Concomitant]
     Indication: AORTIC ANEURYSM

REACTIONS (4)
  - DEPRESSION [None]
  - SUICIDAL IDEATION [None]
  - INTENTIONAL DRUG MISUSE [None]
  - BIPOLAR DISORDER [None]
